FAERS Safety Report 6121792-X (Version None)
Quarter: 2009Q1

REPORT INFORMATION
  Report Type: 
  Country: None (occurrence: None)
  Receive Date: 20090313
  Receipt Date: 20090313
  Transmission Date: 20090719
  Serious: No
  Sender: FDA-Public Use
  Company Number: None

PATIENT
  Age: 81 Year
  Sex: Male
  Weight: 99.8 kg

DRUGS (1)
  1. FOSPHENYTOIN [Suspect]
     Indication: CONVULSION PROPHYLAXIS
     Dosage: 1500 ONCE IV
     Route: 042
     Dates: start: 20090114, end: 20090114

REACTIONS (3)
  - ATRIOVENTRICULAR BLOCK COMPLETE [None]
  - HYPOTENSION [None]
  - NODAL RHYTHM [None]
